FAERS Safety Report 10507899 (Version 1)
Quarter: 2014Q4

REPORT INFORMATION
  Report Type: Spontaneous
  Country: GB (occurrence: GB)
  Receive Date: 20141009
  Receipt Date: 20141009
  Transmission Date: 20150528
  Serious: Yes (Other)
  Sender: FDA-Public Use
  Company Number: GB-PFIZER INC-2014275591

PATIENT
  Age: 46 Year
  Sex: Female
  Weight: 74.83 kg

DRUGS (1)
  1. PROVERA [Suspect]
     Active Substance: MEDROXYPROGESTERONE ACETATE
     Dosage: 10 MG, UNK
     Route: 048
     Dates: start: 20140719, end: 20140829

REACTIONS (17)
  - Fluid retention [Recovered/Resolved with Sequelae]
  - Nervousness [Not Recovered/Not Resolved]
  - Weight increased [Not Recovered/Not Resolved]
  - Back pain [Recovering/Resolving]
  - Hypoaesthesia [Recovered/Resolved with Sequelae]
  - Amenorrhoea [Not Recovered/Not Resolved]
  - Mood swings [Unknown]
  - Breast tenderness [Recovered/Resolved]
  - Arthralgia [Not Recovered/Not Resolved]
  - Paraesthesia [Recovered/Resolved with Sequelae]
  - Metrorrhagia [Recovered/Resolved]
  - Syncope [Recovered/Resolved]
  - Neck pain [Unknown]
  - Tinnitus [Recovering/Resolving]
  - Headache [Recovering/Resolving]
  - Pain in extremity [Unknown]
  - Middle ear effusion [Unknown]

NARRATIVE: CASE EVENT DATE: 201408
